FAERS Safety Report 6924392-4 (Version None)
Quarter: 2010Q3

REPORT INFORMATION
  Report Type: 
  Country: None (occurrence: None)
  Receive Date: 20100809
  Receipt Date: 20100722
  Transmission Date: 20110219
  Serious: Yes (Hospitalization, Other)
  Sender: FDA-Public Use
  Company Number: 20100708CINRY1546

PATIENT
  Age: 44 Year
  Sex: Female

DRUGS (31)
  1. CINRYZE [Suspect]
     Indication: HEREDITARY ANGIOEDEMA
     Dosage: (1000 UNIT, 3 IN 1 WK), INTRAVENOUS
     Route: 042
     Dates: start: 20081201
  2. CINRYZE [Suspect]
     Indication: PROPHYLAXIS
     Dosage: (1000 UNIT, 3 IN 1 WK), INTRAVENOUS
     Route: 042
     Dates: start: 20081201
  3. DILAUDID [Suspect]
     Indication: ABDOMINAL PAIN
     Dosage: (4 MG, AS REQUIRED, ORAL
     Route: 048
  4. VISTARIL (HYDROXYZINE HYDROCHLORIDE) [Concomitant]
  5. K-DUR (POTASSIUM CHLORIDE) (10 MILLIEQUIVALENTS, TABLETS) [Concomitant]
  6. LACTULOSE (LACTULOSE) (LIQUID FOR EXTERNAL USE) [Concomitant]
  7. HYDROXYCHLOROQUINE SULFATE [Concomitant]
  8. CORTISPORTIN OTIC (OTOSPORIN) [Concomitant]
  9. ASPIRIN [Concomitant]
  10. AMITRIPTYLINE HYDROCHLORIDE [Concomitant]
  11. DANAZOL [Concomitant]
  12. ZOFRAN [Concomitant]
  13. BENADRYL [Concomitant]
  14. DILANTIN [Concomitant]
  15. FOSAMAX [Concomitant]
  16. BENTYL [Concomitant]
  17. NASONEX [Concomitant]
  18. PROMETHAZINE (PROMETHAZINE) (TABLETS) [Concomitant]
  19. ALBUTEROL HFA (SALBUTAMOL) [Concomitant]
  20. ASMANEX INHALER (MOMETASONE FUROATE) (INHALATION) [Concomitant]
  21. SPIRIVA [Concomitant]
  22. OXYCODONE/ACETAMINOPHEN (PERCOCET-5) [Concomitant]
  23. ATENOLOL [Concomitant]
  24. TRICOR (ADENOSINE) [Concomitant]
  25. FIORICET [Concomitant]
  26. FLEXERIL [Concomitant]
  27. DESYREL [Concomitant]
  28. PROTONIX [Concomitant]
  29. PANCRELIPASE (PANCRELIPASE) (CAPSULES) [Concomitant]
  30. PERCOCET [Concomitant]
  31. ECALLANTIDE [Suspect]
     Indication: HEREDITARY ANGIOEDEMA

REACTIONS (13)
  - ARTERIOSCLEROSIS [None]
  - CELLULITIS [None]
  - CHRONIC OBSTRUCTIVE PULMONARY DISEASE [None]
  - COLITIS ISCHAEMIC [None]
  - DUODENITIS [None]
  - ILEUS [None]
  - INFLUENZA LIKE ILLNESS [None]
  - INFUSION RELATED REACTION [None]
  - NEPHROLITHIASIS [None]
  - OESOPHAGITIS [None]
  - PANCREATITIS ACUTE [None]
  - RED BLOOD CELL COUNT DECREASED [None]
  - REFUSAL OF TREATMENT BY PATIENT [None]
